FAERS Safety Report 13960610 (Version 1)
Quarter: 2017Q3

REPORT INFORMATION
  Report Type: Spontaneous
  Country: US (occurrence: US)
  Receive Date: 20170912
  Receipt Date: 20170912
  Transmission Date: 20171128
  Serious: Yes (Hospitalization)
  Sender: FDA-Public Use
  Company Number: US-ALLERGAN-1702277US

PATIENT
  Sex: Female

DRUGS (1)
  1. LEXAPRO [Suspect]
     Active Substance: ESCITALOPRAM OXALATE
     Indication: PRODUCT USED FOR UNKNOWN INDICATION

REACTIONS (5)
  - Suicidal ideation [Unknown]
  - Inability to afford medication [Unknown]
  - Anxiety [Unknown]
  - Suicide attempt [Unknown]
  - Depression [Unknown]
